FAERS Safety Report 22609508 (Version 2)
Quarter: 2023Q2

REPORT INFORMATION
  Report Type: Spontaneous
  Country: US (occurrence: US)
  Receive Date: 20230616
  Receipt Date: 20230620
  Transmission Date: 20230721
  Serious: Yes (Other)
  Sender: FDA-Public Use
  Company Number: US-BAYER-2023A083313

PATIENT
  Age: 32 Year
  Sex: Female

DRUGS (1)
  1. KYLEENA [Suspect]
     Active Substance: LEVONORGESTREL
     Indication: Contraception
     Dosage: 17.5?G/DAY
     Route: 015
     Dates: start: 20180516

REACTIONS (3)
  - Device breakage [Unknown]
  - Device difficult to use [Unknown]
  - Complication of device removal [Unknown]

NARRATIVE: CASE EVENT DATE: 20230522
